FAERS Safety Report 18096784 (Version 1)
Quarter: 2020Q3

REPORT INFORMATION
  Report Type: Spontaneous
  Country: US (occurrence: US)
  Receive Date: 20200730
  Receipt Date: 20200730
  Transmission Date: 20201103
  Serious: Yes (Death, Hospitalization, Other)
  Sender: FDA-Public Use
  Company Number: US-PURDUE-USA-2020-0160117

PATIENT
  Age: 33 Year
  Sex: Male

DRUGS (2)
  1. OXYCODONE HYDROCHLORIDE (SIMILAR TO NDA 22?272) [Suspect]
     Active Substance: OXYCODONE HYDROCHLORIDE
     Indication: PAIN
     Dosage: UNK
     Route: 048
     Dates: start: 2014, end: 201705
  2. METHADONE [Suspect]
     Active Substance: METHADONE HYDROCHLORIDE
     Indication: DRUG WITHDRAWAL MAINTENANCE THERAPY
     Dosage: UNK
     Route: 065
     Dates: end: 201705

REACTIONS (7)
  - Hospitalisation [Unknown]
  - Drug dependence [Unknown]
  - Intervertebral disc operation [Unknown]
  - Substance abuse [Unknown]
  - Back pain [Not Recovered/Not Resolved]
  - Overdose [Fatal]
  - Intervertebral disc protrusion [Unknown]

NARRATIVE: CASE EVENT DATE: 201412
